FAERS Safety Report 16716928 (Version 1)
Quarter: 2019Q3

REPORT INFORMATION
  Report Type: Report from Study
  Country: MX (occurrence: MX)
  Receive Date: 20190819
  Receipt Date: 20190819
  Transmission Date: 20191005
  Serious: Yes (Other)
  Sender: FDA-Public Use
  Company Number: MX-ASTRAZENECA-2019SF17607

PATIENT
  Age: 14800 Day
  Sex: Male
  Weight: 72 kg

DRUGS (3)
  1. SEROQUEL [Suspect]
     Active Substance: QUETIAPINE FUMARATE
     Dosage: HALF A TABLET OF SEROQUEL (DOES NOT INDICATE WEIGHT) EVERY 24 HOURS AT NIGHT
     Route: 048
  2. SEROPRAM [Concomitant]
     Dates: start: 2001
  3. SEROQUEL [Suspect]
     Active Substance: QUETIAPINE FUMARATE
     Route: 048
     Dates: start: 1999

REACTIONS (6)
  - Panic attack [Not Recovered/Not Resolved]
  - Sleep deficit [Not Recovered/Not Resolved]
  - Feeling abnormal [Not Recovered/Not Resolved]
  - Agitation [Not Recovered/Not Resolved]
  - Anxiety [Not Recovered/Not Resolved]
  - Somnolence [Not Recovered/Not Resolved]

NARRATIVE: CASE EVENT DATE: 20190729
